FAERS Safety Report 10623334 (Version 5)
Quarter: 2015Q1

REPORT INFORMATION
  Report Type: Report from Study
  Country: LT (occurrence: LT)
  Receive Date: 20141203
  Receipt Date: 20150105
  Transmission Date: 20150720
  Serious: Yes (Hospitalization)
  Sender: FDA-Public Use
  Company Number: LT-TEVA-526156USA

PATIENT
  Age: 71 Year
  Sex: Male

DRUGS (17)
  1. PARACETAMOL [Concomitant]
     Active Substance: ACETAMINOPHEN
     Dosage: 1000 MG, SINGLE DOSE
     Route: 048
     Dates: start: 20141107, end: 20141107
  2. METHYLPREDNISOLON                  /00049601/ [Concomitant]
     Active Substance: METHYLPREDNISOLONE
     Dosage: 80 MG, SINGLE DOSE
     Route: 042
     Dates: start: 20141107, end: 20141107
  3. OBINUTUZUMAB [Suspect]
     Active Substance: OBINUTUZUMAB
     Indication: CHRONIC LYMPHOCYTIC LEUKAEMIA REFRACTORY
     Dosage: 100 MG, CYCLE 1 DAY 1
     Route: 042
     Dates: start: 20141106
  4. OBINUTUZUMAB [Suspect]
     Active Substance: OBINUTUZUMAB
     Dosage: 900 MG, CYCLE 1 DAY 2
     Route: 042
     Dates: start: 20141107, end: 20141110
  5. PARACETAMOL [Concomitant]
     Active Substance: ACETAMINOPHEN
     Dosage: 1000 UNK, UNK
     Route: 048
     Dates: start: 20141204, end: 20141204
  6. TAVEGYL [Concomitant]
     Active Substance: CLEMASTINE FUMARATE
     Dosage: 2 MG, SINGLE DOSE
     Route: 042
     Dates: start: 20141127, end: 20141127
  7. METHYLPREDNISOLON                  /00049601/ [Concomitant]
     Active Substance: METHYLPREDNISOLONE
     Dosage: 80 MG, SINGLE DOSE
     Route: 042
     Dates: start: 20141127, end: 20141127
  8. PARACETAMOL [Concomitant]
     Active Substance: ACETAMINOPHEN
     Dosage: SINGLE DOSE
     Route: 048
     Dates: start: 20141127, end: 20141127
  9. TAVEGYL [Concomitant]
     Active Substance: CLEMASTINE FUMARATE
     Indication: INFUSION RELATED REACTION
     Dosage: 2 MG, SINGLE DOSE
     Route: 042
     Dates: start: 20141106, end: 20141106
  10. DEXAMETHASON                       /00016001/ [Concomitant]
     Active Substance: DEXAMETHASONE
     Indication: INFUSION RELATED REACTION
     Dosage: 8 MG, SINGLE DOSE
     Route: 042
     Dates: start: 20141106, end: 20141106
  11. TAVEGYL [Concomitant]
     Active Substance: CLEMASTINE FUMARATE
     Indication: PROPHYLAXIS
     Dosage: 2 MG, SINGLE DOSE
     Route: 042
     Dates: start: 20141106, end: 20141106
  12. METHYLPREDNISOLON                  /00049601/ [Concomitant]
     Active Substance: METHYLPREDNISOLONE
     Indication: PROPHYLAXIS
     Dosage: 80 MG, SINGLE DOSE
     Route: 042
     Dates: start: 20141106, end: 20141106
  13. BENDAMUSTINE HYDROCHLORIDE [Suspect]
     Active Substance: BENDAMUSTINE HYDROCHLORIDE
     Indication: CHRONIC LYMPHOCYTIC LEUKAEMIA REFRACTORY
     Dosage: 88 MG/M2, CYCLE 1 DAY 1
     Route: 042
     Dates: start: 20141106
  14. BENDAMUSTINE HYDROCHLORIDE [Suspect]
     Active Substance: BENDAMUSTINE HYDROCHLORIDE
     Dosage: 88 MG/M2, CYCLE 1 DAY 2
     Route: 042
     Dates: start: 20141107
  15. PARACETAMOL [Concomitant]
     Active Substance: ACETAMINOPHEN
     Indication: PROPHYLAXIS
     Dosage: 1000 MG, SINGLE DOSE
     Route: 048
     Dates: start: 20141106, end: 20141106
  16. TAVEGYL [Concomitant]
     Active Substance: CLEMASTINE FUMARATE
     Dosage: 2 MG, SINGLE DOSE
     Route: 042
     Dates: start: 20141107, end: 20141107
  17. METHYLPREDNISOLON                  /00049601/ [Concomitant]
     Active Substance: METHYLPREDNISOLONE
     Indication: INFUSION RELATED REACTION
     Dosage: 80 MG, SINGLE DOSE
     Route: 042
     Dates: start: 20141106, end: 20141106

REACTIONS (1)
  - Device related infection [Recovered/Resolved]

NARRATIVE: CASE EVENT DATE: 20141110
